FAERS Safety Report 7931172-X (Version None)
Quarter: 2011Q4

REPORT INFORMATION
  Report Type: 
  Country: None (occurrence: None)
  Receive Date: 20111121
  Receipt Date: 20111115
  Transmission Date: 20120403
  Serious: Yes (Hospitalization)
  Sender: FDA-Public Use
  Company Number: US-MERCK-1111USA02035

PATIENT
  Age: 85 Year
  Sex: Female

DRUGS (2)
  1. COSOPT [Suspect]
     Indication: GLAUCOMA
     Route: 047
     Dates: start: 19960101
  2. OCUPRESS [Concomitant]
     Route: 065

REACTIONS (3)
  - ABASIA [None]
  - DEPOSIT EYE [None]
  - HEART RATE IRREGULAR [None]
